FAERS Safety Report 20906859 (Version 1)
Quarter: 2022Q2

REPORT INFORMATION
  Report Type: Spontaneous
  Country: US (occurrence: US)
  Receive Date: 20220602
  Receipt Date: 20220602
  Transmission Date: 20220721
  Serious: Yes (Death, Life-Threatening)
  Sender: FDA-Public Use
  Company Number: US-drreddys-LIT/USA/22/0150678

PATIENT
  Age: 59 Year
  Sex: Male

DRUGS (7)
  1. DOCETAXEL [Suspect]
     Active Substance: DOCETAXEL
     Indication: Non-small cell lung cancer stage IV
     Dosage: 60MG FLAT DOSE
  2. CARBOPLATIN [Suspect]
     Active Substance: CARBOPLATIN
     Indication: Non-small cell lung cancer stage IV
  3. PEMETREXED [Suspect]
     Active Substance: PEMETREXED
     Indication: Non-small cell lung cancer stage IV
     Dosage: 3 CYCLES OF PEMETREXED 500 MG/M2 (1000MG)
  4. PEMETREXED [Suspect]
     Active Substance: PEMETREXED
  5. PEMBROLIZUMAB [Suspect]
     Active Substance: PEMBROLIZUMAB
     Indication: Non-small cell lung cancer stage IV
     Dosage: PEMBROLIZUMAB 200 MG/FLAT DOSE EVERY 3 WEEKS
  6. PEMBROLIZUMAB [Suspect]
     Active Substance: PEMBROLIZUMAB
  7. RAMUCIRUMAB [Suspect]
     Active Substance: RAMUCIRUMAB
     Indication: Non-small cell lung cancer stage IV
     Dosage: 8 MG/KG (700MG) FOR 60 MINUTES EVERY 2 WEEKS OVER A 2.5 MONTHS
     Route: 042

REACTIONS (2)
  - Disease progression [Fatal]
  - Drug ineffective [Unknown]
